FAERS Safety Report 9243252 (Version 2)
Quarter: 2013Q2

REPORT INFORMATION
  Report Type: Spontaneous
  Country: JP (occurrence: JP)
  Receive Date: 20130419
  Receipt Date: 20130502
  Transmission Date: 20140414
  Serious: Yes (Death, Other)
  Sender: FDA-Public Use
  Company Number: JP-BAXTER-2013BAX013671

PATIENT
  Sex: Male

DRUGS (1)
  1. DIANEAL-N PD-4 1.5 PD SOLUTION [Suspect]
     Indication: NEPHROSCLEROSIS
     Route: 033
     Dates: start: 20101222, end: 20130314

REACTIONS (1)
  - Pneumonia [Fatal]
